FAERS Safety Report 7519957-5 (Version None)
Quarter: 2011Q2

REPORT INFORMATION
  Report Type: 
  Country: None (occurrence: None)
  Receive Date: 20110602
  Receipt Date: 20110527
  Transmission Date: 20111010
  Serious: Yes (Hospitalization)
  Sender: FDA-Public Use
  Company Number: US-ABBOTT-11P-163-0729205-00

PATIENT
  Sex: Male
  Weight: 101.7 kg

DRUGS (5)
  1. ASPIRIN [Concomitant]
     Indication: PRODUCT USED FOR UNKNOWN INDICATION
  2. CARVEDILOL [Concomitant]
     Indication: PRODUCT USED FOR UNKNOWN INDICATION
  3. LIPITOR [Concomitant]
     Indication: PRODUCT USED FOR UNKNOWN INDICATION
  4. OMEPRAZOLE [Concomitant]
     Indication: PRODUCT USED FOR UNKNOWN INDICATION
  5. NIASPAN [Suspect]
     Indication: CARDIAC DISORDER
     Dosage: 1000MG AT BEDTIME
     Dates: start: 20030501

REACTIONS (4)
  - POST PROCEDURAL COMPLICATION [None]
  - CORONARY ARTERY BYPASS [None]
  - SCAR [None]
  - FLUSHING [None]
